FAERS Safety Report 23864380 (Version 1)
Quarter: 2024Q2

REPORT INFORMATION
  Report Type: Spontaneous
  Country: US (occurrence: US)
  Receive Date: 20240516
  Receipt Date: 20240516
  Transmission Date: 20240716
  Serious: No
  Sender: FDA-Public Use
  Company Number: US-IMP-2024000132

PATIENT
  Age: 86 Year
  Sex: Female

DRUGS (1)
  1. VEVYE [Suspect]
     Active Substance: CYCLOSPORINE
     Indication: Dry eye
     Dosage: 1 DROP EACH TWICE A DAY
     Route: 047

REACTIONS (2)
  - Condition aggravated [Unknown]
  - Vision blurred [Unknown]
